FAERS Safety Report 4575721-0 (Version None)
Quarter: 2005Q1

REPORT INFORMATION
  Report Type: 
  Country: None (occurrence: None)
  Receive Date: 20050201
  Receipt Date: 20050201
  Transmission Date: 20050727
  Serious: Yes (Life-Threatening)
  Sender: FDA-Public Use
  Company Number: None

PATIENT
  Age: 55 Year
  Sex: Male
  Weight: 70.7 kg

DRUGS (2)
  1. XIGRIS [Suspect]
     Indication: RENAL FAILURE CHRONIC
  2. XIGRIS [Suspect]
     Indication: RESPIRATORY FAILURE

REACTIONS (3)
  - AZOTAEMIA [None]
  - HAEMOTHORAX [None]
  - RENAL FAILURE CHRONIC [None]
